FAERS Safety Report 7627189-5 (Version None)
Quarter: 2011Q3

REPORT INFORMATION
  Report Type: 
  Country: None (occurrence: None)
  Receive Date: 20110721
  Receipt Date: 20110719
  Transmission Date: 20111222
  Serious: Yes (Death)
  Sender: FDA-Public Use
  Company Number: US-PFIZER INC-2010001290

PATIENT
  Age: 47 Year
  Sex: Female

DRUGS (6)
  1. PREGABALIN [Suspect]
     Dosage: UNK
     Route: 048
     Dates: end: 20080101
  2. BACLOFEN [Suspect]
     Dosage: UNK
     Route: 048
     Dates: end: 20080101
  3. HYDROXYZINE [Suspect]
     Dosage: UNK
     Route: 048
     Dates: end: 20080101
  4. ALPRAZOLAM [Suspect]
     Dosage: UNK
     Route: 048
     Dates: end: 20080101
  5. BUTALBITAL AND ACETAMINOPHEN [Suspect]
     Dosage: UNK
     Route: 048
     Dates: end: 20080101
  6. MIRTAZAPINE [Suspect]
     Dosage: UNK
     Route: 048
     Dates: end: 20080101

REACTIONS (2)
  - TOXICITY TO VARIOUS AGENTS [None]
  - COMPLETED SUICIDE [None]
